FAERS Safety Report 10607524 (Version 2)
Quarter: 2014Q4

REPORT INFORMATION
  Report Type: Report from Study
  Country: DE (occurrence: DE)
  Receive Date: 20141125
  Receipt Date: 20141211
  Transmission Date: 20150529
  Serious: Yes (Hospitalization)
  Sender: FDA-Public Use
  Company Number: DE-BIOGENIDEC-2014BI119088

PATIENT
  Age: 42 Year
  Sex: Male
  Weight: 101 kg

DRUGS (11)
  1. CITALOPRAM [Concomitant]
     Active Substance: CITALOPRAM HYDROBROMIDE
  2. TYSABRI [Suspect]
     Active Substance: NATALIZUMAB
     Indication: RELAPSING-REMITTING MULTIPLE SCLEROSIS
     Route: 042
     Dates: start: 20090817
  3. KATADOLON [Concomitant]
     Active Substance: FLUPIRTINE
  4. PANTROPRAZOL HEXAL [Concomitant]
  5. AMANTADIN HEXAL [Concomitant]
  6. NOVAMINSULFON-RATIOPHARM [Concomitant]
     Active Substance: METAMIZOLE
  7. TRIMINEURIN [Concomitant]
  8. OXYCODON 20 [Concomitant]
  9. OXYCODON [Concomitant]
     Active Substance: OXYCODONE
  10. VALDOXAN 25 [Concomitant]
  11. BELOC-ZOK 95 [Concomitant]

REACTIONS (2)
  - General physical health deterioration [Recovered/Resolved with Sequelae]
  - Psychiatric decompensation [Recovered/Resolved with Sequelae]

NARRATIVE: CASE EVENT DATE: 20140212
